FAERS Safety Report 22255641 (Version 1)
Quarter: 2023Q2

REPORT INFORMATION
  Report Type: Spontaneous
  Country: FR (occurrence: FR)
  Receive Date: 20230426
  Receipt Date: 20230426
  Transmission Date: 20230722
  Serious: Yes (Death, Other)
  Sender: FDA-Public Use
  Company Number: None

PATIENT
  Age: 77 Year
  Sex: Female
  Weight: 69.5 kg

DRUGS (1)
  1. ENHERTU [Suspect]
     Active Substance: FAM-TRASTUZUMAB DERUXTECAN-NXKI
     Indication: Invasive ductal breast carcinoma
     Dosage: 5.4 MG/KG, QD
     Route: 065
     Dates: start: 20230222, end: 20230222

REACTIONS (3)
  - Pancytopenia [Fatal]
  - Agranulocytosis [Fatal]
  - Septic shock [Fatal]

NARRATIVE: CASE EVENT DATE: 20230228
